FAERS Safety Report 17032859 (Version 1)
Quarter: 2019Q4

REPORT INFORMATION
  Report Type: Spontaneous
  Country: US (occurrence: US)
  Receive Date: 20191114
  Receipt Date: 20191114
  Transmission Date: 20200122
  Serious: No
  Sender: FDA-Public Use
  Company Number: US-PFIZER INC-2018097939

PATIENT
  Age: 38 Year
  Sex: Female
  Weight: 68.4 kg

DRUGS (3)
  1. SANDOSTATIN [Concomitant]
     Active Substance: OCTREOTIDE ACETATE
     Indication: HORMONE LEVEL ABNORMAL
     Dosage: 30 MG, MONTHLY, [ONCE A MONTH]
     Route: 030
  2. SOMAVERT [Suspect]
     Active Substance: PEGVISOMANT
     Indication: HORMONE LEVEL ABNORMAL
     Dosage: 15 MG, DAILY
     Dates: start: 201608
  3. SOMAVERT [Suspect]
     Active Substance: PEGVISOMANT
     Indication: INSULIN-LIKE GROWTH FACTOR INCREASED
     Dosage: 10 MG, DAILY

REACTIONS (2)
  - Alopecia [Unknown]
  - Insulin-like growth factor decreased [Unknown]
